FAERS Safety Report 14434473 (Version 2)
Quarter: 2018Q4

REPORT INFORMATION
  Report Type: Report from Study
  Country: US (occurrence: US)
  Receive Date: 20180124
  Receipt Date: 20181106
  Transmission Date: 20190204
  Serious: No
  Sender: FDA-Public Use
  Company Number: PHEH2018US003113

PATIENT
  Sex: Male

DRUGS (1)
  1. ILARIS [Suspect]
     Active Substance: CANAKINUMAB
     Indication: CRYOPYRIN ASSOCIATED PERIODIC SYNDROME
     Dosage: 300 MG, EVERY 4 WEEKS
     Route: 058

REACTIONS (2)
  - Rash [Unknown]
  - Nasopharyngitis [Recovered/Resolved]
